FAERS Safety Report 8298519-9 (Version None)
Quarter: 2012Q2

REPORT INFORMATION
  Report Type: 
  Country: None (occurrence: None)
  Receive Date: 20120419
  Receipt Date: 20120312
  Transmission Date: 20120825
  Serious: No
  Sender: FDA-Public Use
  Company Number: US-ABBOTT-12P-163-0915684-00

PATIENT
  Sex: Male
  Weight: 40.86 kg

DRUGS (5)
  1. LUPRON DEPOT-PED [Suspect]
     Indication: PRECOCIOUS PUBERTY
     Dates: start: 20110518, end: 20111227
  2. SINGULAIR [Concomitant]
     Indication: HYPERSENSITIVITY
  3. CLONIDINE [Concomitant]
     Indication: MIGRAINE PROPHYLAXIS
     Dosage: STARTED PRIOR TO STARTING LUPRON DEPOT
     Dates: start: 20110101
  4. LUPRON DEPOT-PED [Suspect]
     Dates: start: 20120101
  5. LUPRON DEPOT-PED [Suspect]
     Indication: PRECOCIOUS PUBERTY
     Dates: start: 20120101

REACTIONS (5)
  - VOMITING [None]
  - NAUSEA [None]
  - MIGRAINE [None]
  - DIARRHOEA [None]
  - PHARYNGITIS STREPTOCOCCAL [None]
